FAERS Safety Report 20333895 (Version 1)
Quarter: 2022Q1

REPORT INFORMATION
  Report Type: Spontaneous
  Country: DE (occurrence: DE)
  Receive Date: 20220113
  Receipt Date: 20220113
  Transmission Date: 20220423
  Serious: Yes (Hospitalization)
  Sender: FDA-Public Use
  Company Number: DE-ADRED-07582-01

PATIENT
  Age: 74 Year
  Sex: Male
  Weight: 92 kg

DRUGS (8)
  1. MOXONIDINE [Suspect]
     Active Substance: MOXONIDINE
     Dosage: .4 MILLIGRAM DAILY;  1-0-1-0,
     Route: 048
  2. TORSEMIDE [Suspect]
     Active Substance: TORSEMIDE
     Dosage: 10 MILLIGRAM DAILY; 1-1-0-0,
     Route: 048
  3. CANDESARTAN CILEXETIL AND HYDROCHLOROTHIAZIDE [Suspect]
     Active Substance: CANDESARTAN CILEXETIL\HYDROCHLOROTHIAZIDE
     Dosage: 1 DOSAGE FORMS DAILY; 32|12.5 MG, 1-0-0-0,
     Route: 048
  4. CANDESARTAN [Suspect]
     Active Substance: CANDESARTAN
     Dosage: 32 MILLIGRAM DAILY; , 0-0-1-0,
     Route: 048
  5. APIXABAN [Concomitant]
     Active Substance: APIXABAN
     Dosage: 10 MILLIGRAM DAILY;  1-0-1-0,
     Route: 048
  6. potassiumiodide/Levothyroxin-Sodium [Concomitant]
     Dosage: 1 DOSAGE FORMS DAILY; 150|50 MCG, 1-0-0-0,
     Route: 048
  7. BISOPROLOL [Concomitant]
     Active Substance: BISOPROLOL
     Dosage: 10 MILLIGRAM DAILY; 1-0-1-0,
     Route: 048
  8. DOXAZOSIN [Concomitant]
     Active Substance: DOXAZOSIN MESYLATE
     Dosage: 4 MILLIGRAM DAILY; 1-0-1-0,
     Route: 048

REACTIONS (4)
  - Hyponatraemia [Unknown]
  - Oedema peripheral [Unknown]
  - Dyspnoea [Unknown]
  - Product prescribing error [Unknown]
